FAERS Safety Report 23282503 (Version 1)
Quarter: 2023Q4

REPORT INFORMATION
  Report Type: Spontaneous
  Country: US (occurrence: US)
  Receive Date: 20231211
  Receipt Date: 20231211
  Transmission Date: 20240110
  Serious: No
  Sender: FDA-Public Use
  Company Number: US-GALDERMA-US2023017333

PATIENT

DRUGS (3)
  1. PROACTIV MD ADAPALENE ACNE TREATMENT [Suspect]
     Active Substance: ADAPALENE
     Indication: Erythema
     Dosage: 1 DOSAGE FORM , 2 OR 3 TIMES PER WEEK
     Route: 061
     Dates: start: 202310, end: 2023
  2. Proactiv MD Ultra Gentle Cleanser [Concomitant]
     Indication: Erythema
     Dosage: 1 DOSAGE FORM, 2 OR MORE TIMES A DAY
     Route: 061
     Dates: start: 202310, end: 2023
  3. Proactiv MD Ultra Hydrating Moisturizer [Concomitant]
     Indication: Erythema
     Dosage: 1 DOSAGE FORM, 2 OR MORE TIMES A DAY
     Route: 061
     Dates: start: 202310, end: 2023

REACTIONS (4)
  - Acne [Not Recovered/Not Resolved]
  - Product use in unapproved indication [Recovered/Resolved]
  - Inappropriate schedule of product administration [Recovered/Resolved]
  - Underdose [Recovered/Resolved]

NARRATIVE: CASE EVENT DATE: 20230101
